FAERS Safety Report 16803716 (Version 1)
Quarter: 2019Q3

REPORT INFORMATION
  Report Type: Spontaneous
  Country: FR (occurrence: FR)
  Receive Date: 20190913
  Receipt Date: 20190913
  Transmission Date: 20191005
  Serious: Yes (Hospitalization, Other)
  Sender: FDA-Public Use
  Company Number: FR-AUROBINDO-AUR-APL-2019-058289

PATIENT
  Age: 28 Year
  Sex: Male
  Weight: 90 kg

DRUGS (7)
  1. LEVOTHYROX [Concomitant]
     Active Substance: LEVOTHYROXINE
     Indication: HYPOTHYROIDISM
     Dosage: 50 MICROGRAM, ONCE A DAY
     Route: 048
  2. IMOVANE [Suspect]
     Active Substance: ZOPICLONE
     Indication: BEHAVIOUR DISORDER
     Dosage: 7.5 MILLIGRAM,IF NEEDED (1 EVENING), 1 AS NECESSARY
     Route: 048
     Dates: start: 20190215
  3. DEPAKOTE [Suspect]
     Active Substance: DIVALPROEX SODIUM
     Indication: PERSONALITY DISORDER
     Dosage: 1500 MILLIGRAM, ONCE A DAY,1-1/2-1
     Route: 048
     Dates: start: 20190704, end: 20190730
  4. LOXAPAC [Suspect]
     Active Substance: LOXAPINE
     Indication: IMPULSE-CONTROL DISORDER
     Dosage: 25 MILLIGRAM, 1 AS NECESSARY,IF NEEDED (1 EVENING)
     Route: 048
     Dates: start: 20170802
  5. CLOZAPINE. [Suspect]
     Active Substance: CLOZAPINE
     Indication: IMPULSE-CONTROL DISORDER
     Dosage: 400 MILLIGRAM, ONCE A DAY,2-0-2
     Route: 048
     Dates: start: 20180117, end: 20190730
  6. DEPAMIDE [Suspect]
     Active Substance: VALPROMIDE
     Indication: PERSONALITY DISORDER
     Dosage: 1500 MILLIGRAM, ONCE A DAY,2-1-2
     Route: 048
     Dates: start: 2017, end: 20190703
  7. SERTRALINE ARROW CAPSULES 50MG [Suspect]
     Active Substance: SERTRALINE HYDROCHLORIDE
     Indication: LIBIDO DISORDER
     Dosage: 150 MILLIGRAM, ONCE A DAY,0-0-3
     Route: 048
     Dates: start: 20190629

REACTIONS (3)
  - Seizure [Recovered/Resolved]
  - Loss of consciousness [Recovered/Resolved]
  - Encephalopathy [Recovered/Resolved]

NARRATIVE: CASE EVENT DATE: 20190729
